FAERS Safety Report 17747295 (Version 1)
Quarter: 2020Q2

REPORT INFORMATION
  Report Type: Spontaneous
  Country: US (occurrence: US)
  Receive Date: 20200505
  Receipt Date: 20200505
  Transmission Date: 20200714
  Serious: Yes (Death)
  Sender: FDA-Public Use
  Company Number: US-PFIZER INC-2020168051

PATIENT
  Age: 53 Year
  Sex: Male

DRUGS (12)
  1. DDAVP [Concomitant]
     Active Substance: DESMOPRESSIN ACETATE
     Indication: ENTEROCOLITIS
  2. DDAVP [Concomitant]
     Active Substance: DESMOPRESSIN ACETATE
     Indication: HERMANSKY-PUDLAK SYNDROME
     Dosage: 0.3 MG/KG
     Dates: start: 200204
  3. INFLIXIMAB [Suspect]
     Active Substance: INFLIXIMAB
     Indication: COLITIS
  4. CIPROFLOXACIN. [Suspect]
     Active Substance: CIPROFLOXACIN
     Indication: ENTEROCOLITIS
     Dosage: UNK
     Route: 042
     Dates: start: 200409
  5. CIPROFLOXACIN. [Suspect]
     Active Substance: CIPROFLOXACIN
     Indication: HERMANSKY-PUDLAK SYNDROME
  6. MESALAMINE. [Concomitant]
     Active Substance: MESALAMINE
     Indication: HERMANSKY-PUDLAK SYNDROME
  7. METRONIDAZOLE. [Suspect]
     Active Substance: METRONIDAZOLE
     Indication: ENTEROCOLITIS
     Dosage: UNK
     Dates: start: 200409
  8. INFLIXIMAB [Suspect]
     Active Substance: INFLIXIMAB
     Indication: HERMANSKY-PUDLAK SYNDROME
     Dosage: 5 MG/KG (INFUSION, AT 0, 2, 6 WK)
     Dates: start: 2002
  9. 6-MERCAPTOPURINE MONOHYDRATE [Suspect]
     Active Substance: MERCAPTOPURINE
     Indication: ENTEROCOLITIS
     Dosage: 75 MG, DAILY
  10. MESALAMINE. [Concomitant]
     Active Substance: MESALAMINE
     Indication: ENTEROCOLITIS
     Dosage: UNK
     Dates: start: 2002
  11. METRONIDAZOLE. [Suspect]
     Active Substance: METRONIDAZOLE
     Indication: HERMANSKY-PUDLAK SYNDROME
     Dosage: 500 MG, 3X/DAY
     Dates: start: 2002
  12. 6-MERCAPTOPURINE MONOHYDRATE [Suspect]
     Active Substance: MERCAPTOPURINE
     Indication: HERMANSKY-PUDLAK SYNDROME
     Dosage: 50 MG
     Dates: start: 2002

REACTIONS (2)
  - Off label use [Unknown]
  - Drug ineffective for unapproved indication [Fatal]

NARRATIVE: CASE EVENT DATE: 2002
